FAERS Safety Report 8905490 (Version 1)
Quarter: 2012Q4

REPORT INFORMATION
  Report Type: Report from Study
  Country: JP (occurrence: JP)
  Receive Date: 20121112
  Receipt Date: 20121112
  Transmission Date: 20130627
  Serious: Yes (Other)
  Sender: FDA-Public Use
  Company Number: JP-VERTEX PHARMACEUTICAL INC.-AE-2012-004427

PATIENT
  Age: 67 Year
  Sex: Female

DRUGS (11)
  1. VX-950 [Suspect]
     Indication: CHRONIC HEPATITIS C
     Dosage: 2250 mg, qd
     Route: 048
     Dates: start: 20120125, end: 20120126
  2. VX-950 [Suspect]
     Dosage: 1500 mg, qd
     Route: 048
     Dates: start: 20120127, end: 20120417
  3. PEGINTRON                          /01543001/ [Suspect]
     Indication: CHRONIC HEPATITIS C
     Dosage: 1.5 ?g/kg, qw
     Route: 058
     Dates: start: 20120125
  4. REBETOL [Suspect]
     Indication: CHRONIC HEPATITIS C
     Dosage: 400 mg, qd
     Route: 048
     Dates: start: 20120125, end: 20120309
  5. REBETOL [Suspect]
     Dosage: 200 mg, qd
     Route: 048
     Dates: start: 20120310, end: 20120413
  6. REBETOL [Suspect]
     Dosage: 400 mg, qd
     Route: 048
     Dates: start: 20120414, end: 20120524
  7. REBETOL [Suspect]
     Dosage: 600 mg, qd
     Route: 048
     Dates: start: 20120525
  8. RECALBON [Concomitant]
     Route: 048
  9. RECALBON [Concomitant]
     Dosage: 50 mg, qw
     Route: 048
  10. OPAPROSMON [Concomitant]
     Dosage: 15 ?g, qd
     Route: 048
  11. TAKEPRON [Concomitant]
     Dosage: 15 mg, qd
     Route: 048
     Dates: start: 20120310, end: 20120424

REACTIONS (15)
  - Erythema multiforme [Recovered/Resolved]
  - Decreased appetite [None]
  - Hyperuricaemia [None]
  - Blood creatinine increased [None]
  - Rash [None]
  - Rash [None]
  - Injection site erythema [None]
  - Injection site pruritus [None]
  - Pruritus [None]
  - Haemoglobin decreased [None]
  - Blood glucose increased [None]
  - Dry skin [None]
  - Stomatitis [None]
  - Nasopharyngitis [None]
  - Bronchitis [None]
